FAERS Safety Report 7699482-1 (Version None)
Quarter: 2011Q3

REPORT INFORMATION
  Report Type: 
  Country: None (occurrence: None)
  Receive Date: 20110820
  Receipt Date: 20110109
  Transmission Date: 20111222
  Serious: No
  Sender: FDA-Public Use
  Company Number: US-ALLERGAN-1100282US

PATIENT
  Age: 64 Year
  Sex: Female

DRUGS (1)
  1. SANCTURA XR [Suspect]
     Indication: HYPERTONIC BLADDER
     Dosage: UNK
     Route: 048
     Dates: start: 20110104

REACTIONS (4)
  - BACK PAIN [None]
  - ARTHRALGIA [None]
  - PALPITATIONS [None]
  - ABDOMINAL DISCOMFORT [None]
